FAERS Safety Report 9818015 (Version 1)
Quarter: 2013Q4

REPORT INFORMATION
  Report Type: Spontaneous
  Country: US (occurrence: None)
  Receive Date: 20131223
  Receipt Date: 20131223
  Transmission Date: 20140711
  Serious: No
  Sender: FDA-Public Use
  Company Number: 218943

PATIENT
  Age: 63 Year
  Sex: Female

DRUGS (3)
  1. PICATO [Suspect]
     Indication: ACTINIC KERATOSIS
     Dates: start: 20120911, end: 20120913
  2. LUNESTA (ESZOPICLONE) [Concomitant]
  3. Z-PAK (AZITHROMYCIN) [Concomitant]

REACTIONS (4)
  - Application site erythema [None]
  - Application site swelling [None]
  - Skin irritation [None]
  - Drug administered at inappropriate site [None]
